FAERS Safety Report 7508635-4 (Version None)
Quarter: 2011Q2

REPORT INFORMATION
  Report Type: 
  Country: None (occurrence: None)
  Receive Date: 20110527
  Receipt Date: 20100524
  Transmission Date: 20111010
  Serious: No
  Sender: FDA-Public Use
  Company Number: A0852907A

PATIENT
  Age: 53 Year
  Sex: Male

DRUGS (16)
  1. COMBIVENT [Concomitant]
  2. ASPIRIN [Concomitant]
  3. NEXIUM [Concomitant]
  4. LIPITOR [Concomitant]
  5. HYDROCODONE BITARTRATE [Concomitant]
  6. METOPROLOL TARTRATE [Concomitant]
  7. AMLODIPINE [Concomitant]
  8. GLIMEPIRIDE [Concomitant]
  9. COZAAR [Concomitant]
  10. ADVAIR DISKUS 100/50 [Concomitant]
  11. ZINC [Concomitant]
  12. VENTOLIN [Suspect]
     Indication: ASTHMA
     Dosage: 2PUFF AS REQUIRED
     Route: 055
     Dates: start: 20060101
  13. MULTI-VITAMIN [Concomitant]
  14. METFORMIN HCL [Concomitant]
  15. ENALAPRIL MALEATE [Concomitant]
  16. TRAZODONE HCL [Concomitant]

REACTIONS (8)
  - LOWER RESPIRATORY TRACT INFECTION [None]
  - PANIC REACTION [None]
  - CHEST DISCOMFORT [None]
  - PRODUCT QUALITY ISSUE [None]
  - DYSPNOEA [None]
  - ASTHENIA [None]
  - OROPHARYNGEAL PAIN [None]
  - PRODUCTIVE COUGH [None]
